FAERS Safety Report 10886010 (Version 3)
Quarter: 2019Q3

REPORT INFORMATION
  Report Type: Spontaneous
  Country: US (occurrence: US)
  Receive Date: 20150304
  Receipt Date: 20190705
  Transmission Date: 20191004
  Serious: Yes (Death, Hospitalization, Other)
  Sender: FDA-Public Use
  Company Number: US-009507513-1503USA001377

PATIENT
  Sex: Female
  Weight: 70.3 kg

DRUGS (1)
  1. JANUVIA [Suspect]
     Active Substance: SITAGLIPTIN PHOSPHATE
     Dosage: 100 MILLIGRAM, ONCE DAILY
     Route: 048
     Dates: start: 20070306, end: 20100201

REACTIONS (42)
  - Neutropenia [Unknown]
  - Hypertension [Not Recovered/Not Resolved]
  - Heart rate decreased [Unknown]
  - Immature granulocyte count increased [Unknown]
  - Febrile neutropenia [Recovered/Resolved]
  - Anisometropia [Unknown]
  - Chromaturia [Unknown]
  - Body temperature decreased [Unknown]
  - Mean cell haemoglobin increased [Unknown]
  - Immature granulocyte percentage increased [Unknown]
  - Blindness [Not Recovered/Not Resolved]
  - Cholecystitis acute [Unknown]
  - Helicobacter infection [Unknown]
  - Haemorrhage intracranial [Unknown]
  - Blood cholesterol increased [Not Recovered/Not Resolved]
  - Hyperlipidaemia [Not Recovered/Not Resolved]
  - Weight increased [Unknown]
  - Bile duct obstruction [Unknown]
  - Gastrooesophageal reflux disease [Not Recovered/Not Resolved]
  - Myopia [Unknown]
  - Hysterectomy [Unknown]
  - Hiatus hernia [Unknown]
  - Haemoglobin decreased [Unknown]
  - Red cell distribution width increased [Unknown]
  - Atrial fibrillation [Unknown]
  - Dehydration [Unknown]
  - Basedow^s disease [Unknown]
  - Astigmatism [Unknown]
  - Monocyte percentage increased [Unknown]
  - Red blood cell count decreased [Unknown]
  - Spinal osteoarthritis [Unknown]
  - Aortic disorder [Unknown]
  - Aortic arteriosclerosis [Unknown]
  - Glaucoma [Unknown]
  - Cataract [Unknown]
  - Arrhythmia [Unknown]
  - Hypothyroidism [Unknown]
  - Presbyopia [Unknown]
  - Constipation [Unknown]
  - Pancreatic carcinoma [Fatal]
  - Diabetes mellitus inadequate control [Unknown]
  - Haematocrit decreased [Unknown]

NARRATIVE: CASE EVENT DATE: 200805
